FAERS Safety Report 5605792-1 (Version None)
Quarter: 2008Q1

REPORT INFORMATION
  Report Type: 
  Country: None (occurrence: None)
  Receive Date: 20080129
  Receipt Date: 20080115
  Transmission Date: 20080703
  Serious: Yes (Disabling)
  Sender: FDA-Public Use
  Company Number: ID-BAYER-200810829GPV

PATIENT
  Sex: Male
  Weight: 60 kg

DRUGS (1)
  1. FLUDARA [Suspect]
     Indication: CHRONIC LYMPHOCYTIC LEUKAEMIA
     Dosage: UNIT DOSE: 10 MG
     Route: 048
     Dates: start: 20070801

REACTIONS (1)
  - DIPLEGIA [None]
